FAERS Safety Report 7946041-9 (Version None)
Quarter: 2011Q4

REPORT INFORMATION
  Report Type: 
  Country: None (occurrence: None)
  Receive Date: 20111129
  Receipt Date: 20111013
  Transmission Date: 20120403
  Serious: Yes (Other)
  Sender: FDA-Public Use
  Company Number: US-GLAXOSMITHKLINE-A0948983A

PATIENT
  Age: 14 Year
  Sex: Female
  Weight: 55 kg

DRUGS (2)
  1. DUAC [Suspect]
     Indication: ACNE
     Dosage: 1APP AT NIGHT
     Route: 061
     Dates: start: 20111012, end: 20111012
  2. NO CONCURRENT MEDICATION [Concomitant]

REACTIONS (5)
  - LIP SWELLING [None]
  - URTICARIA [None]
  - EYE SWELLING [None]
  - PRURITUS [None]
  - ERYTHEMA [None]
